FAERS Safety Report 9145661 (Version 3)
Quarter: 2013Q2

REPORT INFORMATION
  Report Type: Spontaneous
  Country: US (occurrence: US)
  Receive Date: 20130307
  Receipt Date: 20130611
  Transmission Date: 20140414
  Serious: Yes (Other)
  Sender: FDA-Public Use
  Company Number: US-BAYER-2013-027456

PATIENT
  Age: 25 Year
  Sex: Female
  Weight: 53.06 kg

DRUGS (2)
  1. MIRENA [Suspect]
     Indication: CONTRACEPTION
     Dosage: 20 MCG/24HR, CONT
     Route: 015
     Dates: start: 20130222
  2. MIRENA [Suspect]
     Indication: DYSMENORRHOEA
     Dosage: 20 MCG/24HR, CONT
     Route: 015
     Dates: start: 20130308, end: 20130319

REACTIONS (6)
  - Vaginal discharge [Recovered/Resolved]
  - Uterine perforation [Recovered/Resolved]
  - Uterine perforation [Recovered/Resolved]
  - Device misuse [None]
  - Device dislocation [Recovered/Resolved]
  - Abdominal pain [Recovered/Resolved]
